FAERS Safety Report 6435069-6 (Version None)
Quarter: 2009Q4

REPORT INFORMATION
  Report Type: 
  Country: None (occurrence: None)
  Receive Date: 20091110
  Receipt Date: 20091028
  Transmission Date: 20100525
  Serious: Yes (Other)
  Sender: FDA-Public Use
  Company Number: JP-PFIZER INC-2009291108

PATIENT
  Age: 61 Year
  Sex: Female

DRUGS (2)
  1. METHYLPREDNISOLONE ACETATE AND METHYLPREDNISOLONE AND METHYLPREDNISOLO [Suspect]
     Indication: MYOSITIS
     Dosage: 1000 MG/DAY
     Dates: start: 20060601
  2. PREDNISOLONE AND PREDNISOLONE STEAGLATE [Suspect]
     Indication: MYOSITIS
     Dates: start: 20060401

REACTIONS (4)
  - GLUCOSE TOLERANCE IMPAIRED [None]
  - HEPATIC ENZYME INCREASED [None]
  - HEPATIC STEATOSIS [None]
  - SPINAL COMPRESSION FRACTURE [None]
